FAERS Safety Report 4421675-7 (Version None)
Quarter: 2004Q3

REPORT INFORMATION
  Report Type: 
  Country: None (occurrence: None)
  Receive Date: 20040804
  Receipt Date: 20040722
  Transmission Date: 20050211
  Serious: Yes (Hospitalization)
  Sender: FDA-Public Use
  Company Number: GBR-2004-0001184

PATIENT
  Age: 84 Year
  Sex: Female

DRUGS (7)
  1. OXYCONTIN [Suspect]
     Dosage: 5 MG, BID
     Dates: start: 20040712
  2. VERAPAMIL [Concomitant]
  3. ASPIRIN [Concomitant]
  4. BUMETANIDE [Concomitant]
  5. DIPYRIDAMOLE [Concomitant]
  6. ENALAPRIL MALEATE [Concomitant]
  7. DIGOXIN [Concomitant]

REACTIONS (3)
  - CIRCULATORY COLLAPSE [None]
  - CORONARY ARTERY DISEASE [None]
  - VOMITING [None]
